FAERS Safety Report 15615932 (Version 1)
Quarter: 2018Q4

REPORT INFORMATION
  Report Type: Spontaneous
  Country: FR (occurrence: FR)
  Receive Date: 20181114
  Receipt Date: 20181114
  Transmission Date: 20190205
  Serious: Yes (Hospitalization)
  Sender: FDA-Public Use
  Company Number: FR-ACCORD-091958

PATIENT
  Age: 61 Year
  Sex: Male
  Weight: 71 kg

DRUGS (2)
  1. TALTZ [Suspect]
     Active Substance: IXEKIZUMAB
     Indication: PITYRIASIS RUBRA PILARIS
     Route: 058
     Dates: start: 201707, end: 201802
  2. METHOTREXATE. [Suspect]
     Active Substance: METHOTREXATE
     Indication: PITYRIASIS RUBRA PILARIS
     Route: 048
     Dates: start: 201709, end: 201802

REACTIONS (2)
  - Off label use [Unknown]
  - Peritonsillar abscess [Recovered/Resolved]

NARRATIVE: CASE EVENT DATE: 201801
